FAERS Safety Report 8457206-4 (Version None)
Quarter: 2012Q2

REPORT INFORMATION
  Report Type: 
  Country: None (occurrence: None)
  Receive Date: 20120621
  Receipt Date: 20120619
  Transmission Date: 20120825
  Serious: Yes (Death, Hospitalization, Other)
  Sender: FDA-Public Use
  Company Number: PHHY2012IT052862

PATIENT
  Age: 22 Year
  Sex: Female

DRUGS (3)
  1. CYCLOSPORINE [Suspect]
     Indication: GRAFT VERSUS HOST DISEASE
     Dosage: UNK UKN, UNK
  2. RITUXIMAB [Concomitant]
     Dosage: 200 MG/M2
  3. ANTI-THYMOCYTE GLOBULIN NOS [Concomitant]
     Dosage: 5 MG/KG, UNK

REACTIONS (11)
  - GASTROINTESTINAL HYPOMOTILITY [None]
  - GRAFT VERSUS HOST DISEASE IN SKIN [None]
  - VISUAL IMPAIRMENT [None]
  - VISION BLURRED [None]
  - VISUAL ACUITY REDUCED [None]
  - LOSS OF CONSCIOUSNESS [None]
  - SEPTIC SHOCK [None]
  - POSTERIOR REVERSIBLE ENCEPHALOPATHY SYNDROME [None]
  - CLOSTRIDIUM DIFFICILE COLITIS [None]
  - GRAFT VERSUS HOST DISEASE IN INTESTINE [None]
  - ACUTE RESPIRATORY DISTRESS SYNDROME [None]
